FAERS Safety Report 9715905 (Version 1)
Quarter: 2013Q4

REPORT INFORMATION
  Report Type: Spontaneous
  Country: US (occurrence: None)
  Receive Date: 20131126
  Receipt Date: 20131126
  Transmission Date: 20140711
  Serious: Yes (Other)
  Sender: FDA-Public Use
  Company Number: None

PATIENT
  Sex: Female

DRUGS (2)
  1. AMPHETAMINE-DEXTROAMPHETAMINE XR [Suspect]
     Indication: ATTENTION DEFICIT/HYPERACTIVITY DISORDER
     Route: 048
  2. AMPHETAMINE-DEXTROAMPHETAMINE XR [Suspect]

REACTIONS (3)
  - Abdominal discomfort [None]
  - Abdominal pain upper [None]
  - Vomiting [None]
